FAERS Safety Report 13098509 (Version 1)
Quarter: 2017Q1

REPORT INFORMATION
  Report Type: Spontaneous
  Country: US (occurrence: US)
  Receive Date: 20170109
  Receipt Date: 20170109
  Transmission Date: 20170428
  Serious: Yes (Death)
  Sender: FDA-Public Use
  Company Number: US-BAYER-2017-001625

PATIENT
  Age: 20 Year
  Sex: Male

DRUGS (6)
  1. ALCOHOL. [Suspect]
     Active Substance: ALCOHOL
  2. METHYLPHENIDATE. [Suspect]
     Active Substance: METHYLPHENIDATE
  3. ACETYLSALICYLIC ACID (} 100 MG) [Suspect]
     Active Substance: ASPIRIN
     Dosage: UNK
  4. PSEUDOEPHEDRINE [Suspect]
     Active Substance: PSEUDOEPHEDRINE
  5. PARACETAMOL [Suspect]
     Active Substance: ACETAMINOPHEN
  6. DIPHENHYDRAMINE, COMBINATIONS (DIPHENHYDRAMINE\PSEUDOEPHEDRINE) [Suspect]
     Active Substance: DIPHENHYDRAMINE\PSEUDOEPHEDRINE

REACTIONS (3)
  - Toxicity to various agents [Fatal]
  - Intentional overdose [Fatal]
  - Completed suicide [None]
